FAERS Safety Report 14952467 (Version 1)
Quarter: 2018Q2

REPORT INFORMATION
  Report Type: Spontaneous
  Country: US (occurrence: US)
  Receive Date: 20180530
  Receipt Date: 20180530
  Transmission Date: 20180711
  Serious: No
  Sender: FDA-Public Use
  Company Number: US-PFIZER INC-2018216374

PATIENT
  Sex: Female
  Weight: 77 kg

DRUGS (1)
  1. LYRICA [Suspect]
     Active Substance: PREGABALIN
     Indication: BACK PAIN
     Dosage: 75 MG TABLET, 2X/DAY
     Dates: start: 2017

REACTIONS (1)
  - Drug ineffective [Unknown]
